FAERS Safety Report 6806966-4 (Version None)
Quarter: 2010Q2

REPORT INFORMATION
  Report Type: 
  Country: None (occurrence: None)
  Receive Date: 20100629
  Receipt Date: 20080716
  Transmission Date: 20101027
  Serious: Yes (Other)
  Sender: FDA-Public Use
  Company Number: US-PFIZER INC-2008044275

PATIENT
  Sex: Male
  Weight: 86 kg

DRUGS (8)
  1. TIKOSYN [Suspect]
     Indication: CARDIAC DISORDER
     Dates: start: 20080506
  2. SINGULAIR [Concomitant]
  3. PLAVIX [Concomitant]
  4. ZOCOR [Concomitant]
  5. ASPIRINE [Concomitant]
  6. CALCIUM CARBONATE [Concomitant]
  7. NIACIN [Concomitant]
  8. TOPROL-XL [Concomitant]

REACTIONS (2)
  - DYSPNOEA [None]
  - MALAISE [None]
